FAERS Safety Report 5877451-1 (Version None)
Quarter: 2008Q3

REPORT INFORMATION
  Report Type: 
  Country: None (occurrence: None)
  Receive Date: 20080909
  Receipt Date: 20080825
  Transmission Date: 20090109
  Serious: Yes (Death)
  Sender: FDA-Public Use
  Company Number: 2008US001660

PATIENT
  Age: 52 Year
  Sex: Male

DRUGS (11)
  1. PROGRAF [Suspect]
     Indication: LIVER TRANSPLANT
     Dates: start: 20051201
  2. GLIPIZIDE [Concomitant]
  3. ASPIRIN [Concomitant]
  4. LISINOPRIL [Concomitant]
  5. NIFEDIPINE [Concomitant]
  6. MAGNESIUM (MAGNESIUM) [Concomitant]
  7. PROCARDIA [Concomitant]
  8. OXYCONTIN [Concomitant]
  9. OXYCODONE HCL [Concomitant]
  10. SENNOKOT (SENNOSIDE B) [Concomitant]
  11. DULCOLAX [Concomitant]

REACTIONS (3)
  - HEPATIC NEOPLASM MALIGNANT RECURRENT [None]
  - METASTASES TO ADRENALS [None]
  - METASTASES TO KIDNEY [None]
